FAERS Safety Report 18054522 (Version 1)
Quarter: 2020Q3

REPORT INFORMATION
  Report Type: Spontaneous
  Country: US (occurrence: US)
  Receive Date: 20200722
  Receipt Date: 20200722
  Transmission Date: 20201103
  Serious: Yes (Other)
  Sender: FDA-Public Use
  Company Number: None

PATIENT
  Age: 61 Year
  Sex: Male

DRUGS (1)
  1. TALTZ [Suspect]
     Active Substance: IXEKIZUMAB
     Indication: PSORIASIS
     Dosage: ?          OTHER FREQUENCY:UNKNOWN;?
     Route: 058

REACTIONS (5)
  - Weight decreased [None]
  - COVID-19 [None]
  - Fatigue [None]
  - Decreased appetite [None]
  - Dysgeusia [None]

NARRATIVE: CASE EVENT DATE: 20200722
